FAERS Safety Report 13878999 (Version 1)
Quarter: 2017Q3

REPORT INFORMATION
  Report Type: Spontaneous
  Country: JP (occurrence: JP)
  Receive Date: 20170817
  Receipt Date: 20170817
  Transmission Date: 20171127
  Serious: Yes (Death, Other)
  Sender: FDA-Public Use
  Company Number: JP-MYLANLABS-2017M1050988

PATIENT

DRUGS (7)
  1. ETOPOSIDE. [Suspect]
     Active Substance: ETOPOSIDE
     Dosage: 14 DAYS AT 6- TO 8-WEEK INTERVALS AFTER THE THIRD COURSE (TOTAL, 9,800 MG IN 27 COURSES)
     Route: 048
  2. FLUDARABINE [Suspect]
     Active Substance: FLUDARABINE PHOSPHATE
     Indication: PRODUCT USED FOR UNKNOWN INDICATION
     Dosage: 180 MG/M2
     Route: 042
  3. ETOPOSIDE. [Suspect]
     Active Substance: ETOPOSIDE
     Indication: ADULT T-CELL LYMPHOMA/LEUKAEMIA
     Dosage: 25 MG/DAY FOR 21 DAYS AT 7 WEEK INTERVALS IN THE FIRST TWO COURSES (TOTAL, 9,800 MG IN 27 COURSES)
     Route: 048
  4. CYTARABINE. [Concomitant]
     Active Substance: CYTARABINE
     Indication: ADULT T-CELL LYMPHOMA/LEUKAEMIA
     Route: 065
  5. ETOPOSIDE. [Suspect]
     Active Substance: ETOPOSIDE
     Dosage: INTERMITTENT ADMINISTRATION WITH A SHORT INTERVAL (TOTAL, 9,800 MG IN 27 COURSES)
     Route: 048
  6. BUSULFAN. [Suspect]
     Active Substance: BUSULFAN
     Indication: PRODUCT USED FOR UNKNOWN INDICATION
     Dosage: 8 MG/KG
     Route: 042
  7. IDARUBICIN [Concomitant]
     Active Substance: IDARUBICIN
     Indication: ADULT T-CELL LYMPHOMA/LEUKAEMIA
     Route: 065

REACTIONS (5)
  - Acute myeloid leukaemia [Recovering/Resolving]
  - Encephalomyelitis [Unknown]
  - Respiratory failure [Fatal]
  - Cytomegalovirus infection [Unknown]
  - Pneumonia cytomegaloviral [Fatal]
